FAERS Safety Report 14152281 (Version 1)
Quarter: 2017Q4

REPORT INFORMATION
  Report Type: Spontaneous
  Country: US (occurrence: US)
  Receive Date: 20171102
  Receipt Date: 20171102
  Transmission Date: 20180321
  Serious: No
  Sender: FDA-Public Use
  Company Number: US-ASTRAZENECA-2017SF06670

PATIENT
  Age: 15009 Day
  Sex: Female
  Weight: 92.1 kg

DRUGS (5)
  1. TESSALON PEARLS [Concomitant]
     Indication: COUGH
     Route: 048
     Dates: start: 201710
  2. PULMICORT FLEXHALER [Suspect]
     Active Substance: BUDESONIDE
     Indication: BRONCHITIS
     Route: 055
     Dates: start: 201710
  3. PULMICORT FLEXHALER [Suspect]
     Active Substance: BUDESONIDE
     Indication: CARDIAC FAILURE CONGESTIVE
     Route: 055
     Dates: start: 201710
  4. PULMICORT FLEXHALER [Suspect]
     Active Substance: BUDESONIDE
     Indication: PNEUMONIA
     Route: 055
     Dates: start: 201710
  5. VENTOLIN HFA [Concomitant]
     Active Substance: ALBUTEROL SULFATE
     Indication: DYSPNOEA
     Route: 055
     Dates: start: 201611

REACTIONS (12)
  - Cardiomyopathy [Not Recovered/Not Resolved]
  - Drug dose omission [Not Recovered/Not Resolved]
  - Cough [Not Recovered/Not Resolved]
  - Dyspnoea [Not Recovered/Not Resolved]
  - Blood pressure increased [Not Recovered/Not Resolved]
  - Product quality issue [Unknown]
  - Off label use [Unknown]
  - Product use issue [Unknown]
  - Device use issue [Unknown]
  - Oedema [Not Recovered/Not Resolved]
  - Fatigue [Unknown]
  - Feeling abnormal [Not Recovered/Not Resolved]

NARRATIVE: CASE EVENT DATE: 20171012
